FAERS Safety Report 11219321 (Version 1)
Quarter: 2015Q2

REPORT INFORMATION
  Report Type: Spontaneous
  Country: US (occurrence: None)
  Receive Date: 20150624
  Receipt Date: 20150624
  Transmission Date: 20150821
  Serious: Yes (Hospitalization)
  Sender: FDA-Public Use
  Company Number: None

PATIENT
  Age: 82 Year
  Sex: Male
  Weight: 95.26 kg

DRUGS (8)
  1. PROGRAF [Concomitant]
     Active Substance: TACROLIMUS\TACROLIMUS ANHYDROUS
  2. LOPRESSOR [Concomitant]
     Active Substance: METOPROLOL TARTRATE
  3. MULTI VITAMIN [Concomitant]
     Active Substance: VITAMINS
  4. IMDUR [Concomitant]
     Active Substance: ISOSORBIDE MONONITRATE
  5. ASPIRIN. [Concomitant]
     Active Substance: ASPIRIN
  6. NATNOMG [Concomitant]
  7. XARELTO [Suspect]
     Active Substance: RIVAROXABAN
     Indication: ATRIAL FIBRILLATION
     Route: 048
     Dates: start: 20150323, end: 20150525
  8. ALLOPURNILS [Concomitant]

REACTIONS (3)
  - Oropharyngeal pain [None]
  - Feeding disorder [None]
  - Epistaxis [None]

NARRATIVE: CASE EVENT DATE: 20150525
